FAERS Safety Report 25245713 (Version 1)
Quarter: 2025Q2

REPORT INFORMATION
  Report Type: Spontaneous
  Country: US (occurrence: None)
  Receive Date: 20250426
  Receipt Date: 20250426
  Transmission Date: 20250717
  Serious: Yes (Death, Hospitalization)
  Sender: FDA-CTU
  Company Number: None

PATIENT
  Age: 67 Year
  Sex: Male
  Weight: 116.6 kg

DRUGS (4)
  1. DARATUMUMAB\HYALURONIDASE-FIHJ [Suspect]
     Active Substance: DARATUMUMAB\HYALURONIDASE-FIHJ
     Dates: end: 20250411
  2. DEXAMETHASONE [Suspect]
     Active Substance: DEXAMETHASONE
     Dates: end: 20250411
  3. LENALIDOMIDE [Suspect]
     Active Substance: LENALIDOMIDE
     Dates: end: 20250410
  4. VELCADE [Suspect]
     Active Substance: BORTEZOMIB
     Dates: end: 20250411

REACTIONS (4)
  - Circulatory collapse [None]
  - Cardio-respiratory arrest [None]
  - Vomiting [None]
  - Ventricular fibrillation [None]

NARRATIVE: CASE EVENT DATE: 20250411
